FAERS Safety Report 8428201-6 (Version None)
Quarter: 2012Q2

REPORT INFORMATION
  Report Type: 
  Country: None (occurrence: None)
  Receive Date: 20120611
  Receipt Date: 20120611
  Transmission Date: 20120825
  Serious: No
  Sender: FDA-Public Use
  Company Number: US-PFIZER INC-2012139977

PATIENT
  Sex: Male
  Weight: 108.84 kg

DRUGS (3)
  1. AVAPRO [Concomitant]
     Indication: HYPERTENSION
     Dosage: 50 MG, 1X/DAY
  2. PAXIL [Concomitant]
     Indication: PANIC ATTACK
     Dosage: 40 MG, 1X/DAY
  3. NICOTROL [Suspect]
     Indication: SMOKING CESSATION THERAPY
     Dosage: UNK, 8X/DAY
     Dates: start: 20120501

REACTIONS (1)
  - BURNING SENSATION [None]
